FAERS Safety Report 8188992 (Version 4)
Quarter: 2013Q4

REPORT INFORMATION
  Report Type: Report from Study
  Country: DE (occurrence: DE)
  Receive Date: 20111019
  Receipt Date: 20131119
  Transmission Date: 20140711
  Serious: Yes (Hospitalization)
  Sender: FDA-Public Use
  Company Number: DE-CELGENEUS-062-C5013-10120490

PATIENT
  Age: 60 Year
  Sex: Male
  Weight: 65 kg

DRUGS (30)
  1. CC-5013 [Suspect]
     Indication: CHRONIC LYMPHOCYTIC LEUKAEMIA
     Dosage: 5 MILLIGRAM
     Route: 048
     Dates: start: 20101123, end: 20101203
  2. CC-5013 [Suspect]
     Dosage: 2.5 MILLIGRAM
     Route: 048
     Dates: start: 20101220, end: 20101220
  3. CC-5013 [Suspect]
     Dosage: 2.5 MILLIGRAM
     Route: 048
     Dates: start: 20101221, end: 20101222
  4. BUDESONIDE [Concomitant]
     Indication: PRODUCT USED FOR UNKNOWN INDICATION
     Route: 048
  5. BUDESONIDE [Concomitant]
     Indication: PNEUMONIA
  6. TORASEMID [Concomitant]
     Indication: PRODUCT USED FOR UNKNOWN INDICATION
     Dosage: 40 MILLIGRAM
     Route: 048
  7. INSULIN-DETEMIR [Concomitant]
     Indication: PRODUCT USED FOR UNKNOWN INDICATION
     Route: 065
  8. INSULIN HUMAN [Concomitant]
     Indication: PRODUCT USED FOR UNKNOWN INDICATION
     Route: 065
  9. CETROPARIN SODIUM [Concomitant]
     Indication: PRODUCT USED FOR UNKNOWN INDICATION
     Route: 065
  10. VALTREX [Concomitant]
     Indication: HERPES VIRUS INFECTION
     Dosage: 1000 MILLIGRAM
     Route: 048
     Dates: start: 2010
  11. L-THYROXINE [Concomitant]
     Indication: PRODUCT USED FOR UNKNOWN INDICATION
     Dosage: 50 MICROGRAM
     Route: 048
  12. ALLOPURINOL [Concomitant]
     Indication: PROPHYLAXIS
     Dosage: 300 MILLIGRAM
     Route: 048
     Dates: start: 20101123
  13. MST [Concomitant]
     Indication: PAIN
     Dosage: 40 MILLIGRAM
     Route: 048
     Dates: start: 2010
  14. MST [Concomitant]
     Route: 048
     Dates: start: 2010
  15. GABAPENTIN [Concomitant]
     Indication: NEUROPATHY PERIPHERAL
     Route: 048
     Dates: start: 2010
  16. PANTOPRAZOLE [Concomitant]
     Indication: PROPHYLAXIS
     Dosage: 40 MILLIGRAM
     Route: 048
     Dates: start: 2010
  17. COTRIM FORTE [Concomitant]
     Indication: INFECTION PROPHYLAXIS
     Route: 048
     Dates: start: 2010
  18. NOXAFIL [Concomitant]
     Indication: PRODUCT USED FOR UNKNOWN INDICATION
     Dosage: 15 MILLILITER
     Route: 048
  19. AMPHOTERICIN-B [Concomitant]
     Indication: PRODUCT USED FOR UNKNOWN INDICATION
     Route: 048
  20. BERODUAL [Concomitant]
     Indication: PRODUCT USED FOR UNKNOWN INDICATION
     Route: 048
  21. ACC [Concomitant]
     Indication: THROMBOSIS PROPHYLAXIS
     Dosage: 600 MILLIGRAM
     Route: 048
     Dates: start: 2010
  22. DEXAMETHASONE [Concomitant]
     Indication: LYMPHADENOPATHY
     Dosage: 70 MILLIGRAM
     Route: 048
     Dates: start: 2010
  23. POSACONAZOLE [Concomitant]
     Indication: INFECTION PROPHYLAXIS
     Dosage: 5 MILLILITER
     Route: 048
     Dates: start: 2010
  24. POSACONAZOLE [Concomitant]
     Indication: PNEUMONIA
  25. IPRATROPIUM BROMIDE [Concomitant]
     Indication: PNEUMONIA
     Dosage: 10.02 MICROGRAM
     Route: 048
     Dates: start: 2010
  26. CO-TRIMOXAZOLE [Concomitant]
     Indication: PROPHYLAXIS
     Route: 048
     Dates: start: 2010
  27. CO-TRIMOXAZOLE [Concomitant]
     Indication: PNEUMONIA
     Route: 048
  28. ACTRAPID [Concomitant]
     Indication: PRODUCT USED FOR UNKNOWN INDICATION
     Route: 065
  29. PULMICORT [Concomitant]
     Indication: PRODUCT USED FOR UNKNOWN INDICATION
     Route: 048
  30. LEVEMIR [Concomitant]
     Indication: PRODUCT USED FOR UNKNOWN INDICATION
     Route: 065

REACTIONS (4)
  - Hypercalcaemia [Recovered/Resolved]
  - Renal failure acute [Recovered/Resolved]
  - Dyspnoea [Recovered/Resolved with Sequelae]
  - Pneumonia [Recovered/Resolved with Sequelae]
